FAERS Safety Report 18178998 (Version 1)
Quarter: 2020Q3

REPORT INFORMATION
  Report Type: Report from Study
  Country: US (occurrence: US)
  Receive Date: 20200820
  Receipt Date: 20200820
  Transmission Date: 20201103
  Serious: Yes (Other)
  Sender: FDA-Public Use
  Company Number: US-BRISTOL-MYERS SQUIBB COMPANY-BMS-2020-065507

PATIENT
  Age: 53 Year
  Sex: Female

DRUGS (4)
  1. TRAMADOL. [Concomitant]
     Active Substance: TRAMADOL
     Indication: PRODUCT USED FOR UNKNOWN INDICATION
     Route: 065
  2. ANTIDEPRESSANTS [Concomitant]
     Active Substance: UNSPECIFIED INGREDIENT
     Indication: PRODUCT USED FOR UNKNOWN INDICATION
     Route: 065
  3. ABATACEPT [Suspect]
     Active Substance: ABATACEPT
     Indication: RHEUMATOID ARTHRITIS
     Dosage: 750 MILLIGRAM, Q4WK
     Route: 042
  4. ANALGESICS [Concomitant]
     Active Substance: UNSPECIFIED INGREDIENT
     Indication: PRODUCT USED FOR UNKNOWN INDICATION
     Route: 065

REACTIONS (3)
  - Diabetes mellitus [Unknown]
  - Oral candidiasis [Unknown]
  - Upper respiratory tract infection [Unknown]

NARRATIVE: CASE EVENT DATE: 2019
